FAERS Safety Report 5750061-2 (Version None)
Quarter: 2008Q2

REPORT INFORMATION
  Report Type: 
  Country: None (occurrence: None)
  Receive Date: 20080527
  Receipt Date: 20080519
  Transmission Date: 20081010
  Serious: Yes (Disabling, Other)
  Sender: FDA-Public Use
  Company Number: GB-PFIZER INC-2008043174

PATIENT
  Age: 61 Year
  Sex: Male

DRUGS (5)
  1. SALAZOPYRIN [Suspect]
     Indication: SPONDYLOARTHROPATHY
     Route: 048
     Dates: start: 20080304, end: 20080404
  2. ALLOPURINOL [Concomitant]
  3. DICLOFENAC [Concomitant]
  4. OMEPRAZOLE [Concomitant]
  5. PREDNISOLONE [Concomitant]

REACTIONS (3)
  - NEUTROPENIA [None]
  - PNEUMONIA [None]
  - SEPSIS [None]
